FAERS Safety Report 5159528-1 (Version None)
Quarter: 2006Q4

REPORT INFORMATION
  Report Type: 
  Country: None (occurrence: None)
  Receive Date: 20061120
  Receipt Date: 20061109
  Transmission Date: 20070319
  Serious: Yes (Hospitalization)
  Sender: FDA-Public Use
  Company Number: DE-2006-032649

PATIENT
  Sex: Female

DRUGS (1)
  1. BETAFERON (INTERFERON BETA -1B) [Suspect]
     Dosage: SUBCUTANEOUS
     Route: 058
     Dates: start: 20051201

REACTIONS (7)
  - CAROTID ARTERY DISEASE [None]
  - DISEASE RECURRENCE [None]
  - OEDEMA [None]
  - POLYARTERITIS NODOSA [None]
  - SALIVARY GLAND ENLARGEMENT [None]
  - SJOGREN'S SYNDROME [None]
  - VASCULITIS [None]
